FAERS Safety Report 5020799-3 (Version None)
Quarter: 2006Q2

REPORT INFORMATION
  Report Type: 
  Country: None (occurrence: None)
  Receive Date: 20060608
  Receipt Date: 20060601
  Transmission Date: 20061013
  Serious: Yes (Other)
  Sender: FDA-Public Use
  Company Number: PHEH2006US07204

PATIENT
  Age: 27 Year
  Sex: Female

DRUGS (5)
  1. EXJADE [Suspect]
     Indication: BLOOD IRON INCREASED
     Dosage: 1500 MG, QD
     Route: 048
     Dates: start: 20060218, end: 20060507
  2. DESFERAL [Suspect]
     Dosage: TWICE/WEEK
     Dates: start: 20060304, end: 20060507
  3. DESFERAL [Suspect]
     Dosage: UNK, QD
     Dates: start: 20060508
  4. EFFEXOR [Concomitant]
  5. RELPAX [Concomitant]
     Indication: HEADACHE
     Dosage: UNK, PRN

REACTIONS (7)
  - ABDOMINAL PAIN UPPER [None]
  - ALANINE AMINOTRANSFERASE INCREASED [None]
  - ASPARTATE AMINOTRANSFERASE INCREASED [None]
  - BLOOD BILIRUBIN INCREASED [None]
  - DUODENAL ULCER [None]
  - GASTRITIS [None]
  - ULTRASOUND ABDOMEN ABNORMAL [None]
